FAERS Safety Report 9542340 (Version 2)
Quarter: 2014Q2

REPORT INFORMATION
  Report Type: Spontaneous
  Country: JP (occurrence: JP)
  Receive Date: 20130923
  Receipt Date: 20140425
  Transmission Date: 20141212
  Serious: Yes (Death, Life-Threatening, Hospitalization, Other)
  Sender: FDA-Public Use
  Company Number: JP-NOVOPROD-387763

PATIENT
  Age: 11 Year
  Sex: Male
  Weight: 35.8 kg

DRUGS (1)
  1. NORDITROPIN FLEXPROCHU 6.7 MG/ML [Suspect]
     Indication: GROWTH HORMONE DEFICIENCY
     Dosage: 0.7MG TO 1.0MG/WEEK
     Route: 058
     Dates: start: 20111207, end: 20130824

REACTIONS (1)
  - Glioblastoma [Fatal]
